FAERS Safety Report 5970914-X (Version None)
Quarter: 2008Q4

REPORT INFORMATION
  Report Type: 
  Country: None (occurrence: None)
  Receive Date: 20081128
  Receipt Date: 20081118
  Transmission Date: 20090506
  Serious: Yes (Hospitalization, Other)
  Sender: FDA-Public Use
  Company Number: PHEH2008US10431

PATIENT
  Age: 76 Year
  Sex: Female
  Weight: 42.177 kg

DRUGS (13)
  1. RECLAST [Suspect]
     Indication: OSTEOPOROSIS
     Dosage: 5 MG, ONCE/SINGLE
     Route: 042
     Dates: start: 20081112
  2. AREDIA [Suspect]
  3. BONIVA [Suspect]
  4. RANITIDINE [Concomitant]
  5. OLANZAPINE [Concomitant]
  6. ATIVAN [Concomitant]
  7. ACETAMINOPHEN [Concomitant]
  8. METOPROLOL TARTRATE [Concomitant]
  9. MIRTAZAPINE [Concomitant]
  10. LORATADINE [Concomitant]
  11. CLOPIDOGREL [Concomitant]
  12. ASPIRIN [Concomitant]
  13. OMEPRAZOLE [Concomitant]

REACTIONS (9)
  - ASPIRATION [None]
  - CRANIAL NERVE DISORDER [None]
  - DYSPHAGIA [None]
  - ENDOTRACHEAL INTUBATION [None]
  - MUSCULAR WEAKNESS [None]
  - MYALGIA [None]
  - PNEUMONIA ASPIRATION [None]
  - SENSORY LOSS [None]
  - UPPER AIRWAY OBSTRUCTION [None]
